FAERS Safety Report 7258151-2 (Version None)
Quarter: 2011Q1

REPORT INFORMATION
  Report Type: 
  Country: None (occurrence: None)
  Receive Date: 20110129
  Receipt Date: 20100706
  Transmission Date: 20110831
  Serious: No
  Sender: FDA-Public Use
  Company Number: US-ABBOTT-10P-163-0655729-00

PATIENT
  Age: 59 Year
  Sex: Female

DRUGS (3)
  1. SIMVASTATIN [Concomitant]
     Indication: BLOOD CHOLESTEROL
  2. HUMIRA [Suspect]
     Indication: RHEUMATOID ARTHRITIS
     Dates: start: 20100501
  3. FOLIC ACID [Concomitant]
     Indication: BLOOD CHOLESTEROL

REACTIONS (3)
  - PRURITUS [None]
  - CONTUSION [None]
  - LIMB INJURY [None]
